FAERS Safety Report 6915537-0 (Version None)
Quarter: 2010Q3

REPORT INFORMATION
  Report Type: 
  Country: None (occurrence: None)
  Receive Date: 20100809
  Receipt Date: 20100803
  Transmission Date: 20110219
  Serious: Yes (Death, Hospitalization)
  Sender: FDA-Public Use
  Company Number: HU-ELI_LILLY_AND_COMPANY-HU201007002309

PATIENT
  Age: 68 Year
  Sex: Female

DRUGS (3)
  1. XIGRIS [Suspect]
     Indication: SEPSIS
     Dosage: UG/KG/H, AS NEEDED
     Route: 042
     Dates: start: 20100702
  2. IMMUNE GLOBULIN INTRAVENOUS (HUMAN) [Concomitant]
     Dosage: UNK, UNKNOWN
     Dates: start: 20100702
  3. MEROPENEM [Concomitant]
     Dosage: UNK, 3/D
     Dates: start: 20100702

REACTIONS (5)
  - CARDIAC FAILURE [None]
  - CIRCULATORY COLLAPSE [None]
  - PERITONITIS [None]
  - SEPTIC SHOCK [None]
  - SUTURE RUPTURE [None]
